FAERS Safety Report 21454200 (Version 4)
Quarter: 2023Q2

REPORT INFORMATION
  Report Type: Spontaneous
  Country: US (occurrence: US)
  Receive Date: 20221013
  Receipt Date: 20230630
  Transmission Date: 20230722
  Serious: No
  Sender: FDA-Public Use
  Company Number: US-PFIZER INC-202200412961

PATIENT
  Age: 62 Year
  Sex: Female
  Weight: 131.54 kg

DRUGS (1)
  1. TALZENNA [Suspect]
     Active Substance: TALAZOPARIB TOSYLATE
     Indication: Breast cancer metastatic
     Dosage: 0.25 MG, ALTERNATE DAY
     Route: 048
     Dates: start: 2022

REACTIONS (5)
  - Body height decreased [Unknown]
  - Bradykinesia [Unknown]
  - Poor quality product administered [Unknown]
  - Product container seal issue [Unknown]
  - Off label use [Unknown]

NARRATIVE: CASE EVENT DATE: 20220101
